FAERS Safety Report 8575324-7 (Version None)
Quarter: 2012Q3

REPORT INFORMATION
  Report Type: 
  Country: None (occurrence: None)
  Receive Date: 20120807
  Receipt Date: 20120714
  Transmission Date: 20120928
  Serious: Yes (Other)
  Sender: FDA-Public Use
  Company Number: US-JNJFOC-20120707248

PATIENT
  Sex: Female
  Weight: 63.5 kg

DRUGS (7)
  1. IBUPROFEN [Concomitant]
     Indication: HEADACHE
     Route: 065
  2. TRAZODONE HYDROCHLORIDE [Concomitant]
     Indication: HYPERSOMNIA
     Route: 065
  3. ZONEGRAN [Concomitant]
     Indication: CONVULSION
     Route: 065
     Dates: start: 20111201
  4. ORTHO EVRA [Suspect]
     Indication: MENSTRUATION IRREGULAR
     Route: 062
     Dates: start: 20120201
  5. ORTHO EVRA [Suspect]
     Indication: CONTRACEPTION
     Route: 062
     Dates: start: 20120201
  6. ZOLOFT [Suspect]
     Indication: DEPRESSION
     Route: 048
     Dates: start: 20120101
  7. CITALOPRAM HYDROBROMIDE [Concomitant]
     Indication: DEPRESSION
     Route: 065

REACTIONS (5)
  - STRESS [None]
  - CONVULSION [None]
  - OFF LABEL USE [None]
  - FEELING ABNORMAL [None]
  - MENSTRUATION DELAYED [None]
